FAERS Safety Report 20040690 (Version 1)
Quarter: 2021Q4

REPORT INFORMATION
  Report Type: Spontaneous
  Country: US (occurrence: None)
  Receive Date: 20211108
  Receipt Date: 20211108
  Transmission Date: 20220303
  Serious: No
  Sender: FDA-Public Use
  Company Number: None

PATIENT
  Sex: Female

DRUGS (1)
  1. CAPECITABINE [Suspect]
     Active Substance: CAPECITABINE
     Indication: Breast cancer
     Dosage: OTHER QUANTITY : 1000MG TWICE DAILY;?OTHER FREQUENCY : 14 D ON 7D OFF;?
     Route: 048
     Dates: start: 20200904

REACTIONS (1)
  - COVID-19 [None]
